FAERS Safety Report 8401282 (Version 2)
Quarter: 2013Q4

REPORT INFORMATION
  Report Type: Spontaneous
  Country: US (occurrence: US)
  Receive Date: 20120210
  Receipt Date: 20131105
  Transmission Date: 20140711
  Serious: No
  Sender: FDA-Public Use
  Company Number: US-COVIDIEN/TYCO HEALTHCARE/MALLINCKRODT-T201200007

PATIENT
  Age: 58 Year
  Sex: Female
  Weight: 70.3 kg

DRUGS (2)
  1. PENNSAID TOPICAL [Suspect]
     Indication: ARTHRITIS
     Dosage: 30 GTT, BID TO EACH SHOULDER
     Route: 061
     Dates: start: 20111213, end: 20111224
  2. PENNSAID TOPICAL [Suspect]
     Indication: MUSCULOSKELETAL PAIN

REACTIONS (5)
  - Influenza like illness [Recovered/Resolved]
  - Pain in extremity [Recovered/Resolved]
  - Fatigue [Recovered/Resolved]
  - Headache [Recovered/Resolved]
  - Dizziness [Recovered/Resolved]
